FAERS Safety Report 14162913 (Version 1)
Quarter: 2017Q4

REPORT INFORMATION
  Report Type: Spontaneous
  Country: US (occurrence: US)
  Receive Date: 20171106
  Receipt Date: 20171106
  Transmission Date: 20180321
  Serious: Yes (Death)
  Sender: FDA-Public Use
  Company Number: US-PERNIX THERAPEUTICS-2017PT000137

PATIENT
  Sex: Female

DRUGS (1)
  1. PRENATAL 19 [Suspect]
     Active Substance: .ALPHA.-TOCOPHEROL ACETATE, DL-\.BETA.-CAROTENE\ASCORBIC ACID\CALCIUM CARBONATE\CALCIUM PANTOTHENATE\CHOLECALCIFEROL\CYANOCOBALAMIN\DOCUSATE SODIUM\FERROUS FUMARATE\FOLIC ACID\NIACINAMIDE\PYRIDOXINE HYDROCHLORIDE\RIBOFLAVIN\THIAMINE MONONITRATE\ZINC OXIDE
     Indication: PREGNANCY
     Dosage: 1 TABLET, DAILY
     Route: 048
     Dates: start: 201708

REACTIONS (2)
  - Foetal death [Fatal]
  - Exposure during pregnancy [None]
